FAERS Safety Report 8294187-0 (Version None)
Quarter: 2012Q2

REPORT INFORMATION
  Report Type: 
  Country: None (occurrence: None)
  Receive Date: 20120418
  Receipt Date: 20120412
  Transmission Date: 20120825
  Serious: Yes (Other)
  Sender: FDA-Public Use
  Company Number: PHHY2010CA56285

PATIENT
  Sex: Female

DRUGS (5)
  1. CALCIUM CARBONATE [Concomitant]
  2. VITAMIN TAB [Concomitant]
  3. ZOLEDRONOC ACID [Suspect]
     Indication: OSTEOPOROSIS
     Dosage: 5 MG, UNK
     Route: 042
     Dates: start: 20100720
  4. NASONEX [Concomitant]
  5. ZOLEDRONOC ACID [Suspect]
     Dosage: 5 MG, UNK
     Route: 042
     Dates: start: 20120302

REACTIONS (7)
  - PYREXIA [None]
  - SKIN CANCER [None]
  - HEADACHE [None]
  - CHILLS [None]
  - FATIGUE [None]
  - ARTHRALGIA [None]
  - MYALGIA [None]
